FAERS Safety Report 19587833 (Version 1)
Quarter: 2021Q3

REPORT INFORMATION
  Report Type: Spontaneous
  Country: EG (occurrence: EG)
  Receive Date: 20210721
  Receipt Date: 20210721
  Transmission Date: 20211014
  Serious: Yes (Other)
  Sender: FDA-Public Use
  Company Number: EG-HIKMA PHARMACEUTICALS USA INC.-EG-H14001-21-03277

PATIENT
  Age: 42 Year
  Sex: Female

DRUGS (3)
  1. UNITAXEL [Suspect]
     Active Substance: PACLITAXEL
     Indication: OVARIAN CANCER
     Dosage: UNKNOWN
     Route: 041
     Dates: start: 20210524
  2. UNITAXEL [Suspect]
     Active Substance: PACLITAXEL
     Dosage: UNKNOWN
     Route: 041
     Dates: start: 20210524
  3. UNITAXEL [Suspect]
     Active Substance: PACLITAXEL
     Indication: BREAST CANCER
     Route: 041
     Dates: start: 202105

REACTIONS (2)
  - Bone pain [Unknown]
  - Vaginal haemorrhage [Unknown]

NARRATIVE: CASE EVENT DATE: 202105
